FAERS Safety Report 22181016 (Version 2)
Quarter: 2023Q2

REPORT INFORMATION
  Report Type: Report from Study
  Country: US (occurrence: US)
  Receive Date: 20230406
  Receipt Date: 20230414
  Transmission Date: 20230722
  Serious: Yes (Other)
  Sender: FDA-Public Use
  Company Number: US-ABBVIE-4317646

PATIENT
  Age: 63 Year
  Sex: Female

DRUGS (1)
  1. HUMIRA [Suspect]
     Active Substance: ADALIMUMAB
     Indication: Ankylosing spondylitis
     Route: 058
     Dates: start: 20170315

REACTIONS (7)
  - Neuralgia [Not Recovered/Not Resolved]
  - Fall [Unknown]
  - Neck pain [Unknown]
  - Stress [Not Recovered/Not Resolved]
  - Crying [Recovered/Resolved]
  - Hypoaesthesia [Unknown]
  - Sciatica [Unknown]

NARRATIVE: CASE EVENT DATE: 20230331
